FAERS Safety Report 8138980 (Version 5)
Quarter: 2020Q2

REPORT INFORMATION
  Report Type: Spontaneous
  Country: GB (occurrence: GB)
  Receive Date: 20110916
  Receipt Date: 20200416
  Transmission Date: 20200714
  Serious: Yes (Hospitalization, Other)
  Sender: FDA-Public Use
  Company Number: GB-MYLANLABS-2011S1018659

PATIENT
  Age: 21 Year
  Sex: Female

DRUGS (20)
  1. CYCLIZINE [Concomitant]
     Active Substance: CYCLIZINE
     Indication: NAUSEA
     Dosage: 50 MILLIGRAM, QD 50 MG, 3/DAY
     Route: 065
  2. HYDROCORTISONE. [Concomitant]
     Active Substance: HYDROCORTISONE
     Indication: PRODUCT USED FOR UNKNOWN INDICATION
     Dosage: UNK
     Route: 048
  3. BETAHISTINE [Suspect]
     Active Substance: BETAHISTINE
     Indication: PRODUCT USED FOR UNKNOWN INDICATION
     Dosage: 24 MILLIGRAM, QD
     Route: 048
  4. AMITRIPTYLINE [Suspect]
     Active Substance: AMITRIPTYLINE
     Indication: PRODUCT USED FOR UNKNOWN INDICATION
     Dosage: 100 MILLIGRAM, QHS
     Route: 048
  5. PRUCALOPRIDE [Suspect]
     Active Substance: PRUCALOPRIDE
     Indication: PRODUCT USED FOR UNKNOWN INDICATION
     Dosage: 2 MILLIGRAM, QD
     Route: 048
  6. TRAMADOL. [Suspect]
     Active Substance: TRAMADOL
     Indication: ABDOMINAL PAIN
     Dosage: 100 MG, QID (100 MG, 4/DAY)
     Route: 048
     Dates: start: 200910, end: 200911
  7. TRAMADOL. [Suspect]
     Active Substance: TRAMADOL
     Dosage: 150 MILLIGRAM, QD 50 MG, TID
     Route: 048
     Dates: start: 200904, end: 200909
  8. METOCLOPRAMIDE. [Suspect]
     Active Substance: METOCLOPRAMIDE
     Indication: ABDOMINAL PAIN
     Dosage: 10 MG,TID (10 MG, 3/DAY)
     Route: 065
  9. COCODAMOL [Suspect]
     Active Substance: ACETAMINOPHEN\CODEINE PHOSPHATE
     Indication: PRODUCT USED FOR UNKNOWN INDICATION
     Dosage: 8 MICROGRAM, (8 UG/L (30MG/500MG)
     Route: 048
  10. CYCLIZINE [Suspect]
     Active Substance: CYCLIZINE
     Indication: NAUSEA
     Dosage: 50 MILLIGRAM, QD
     Route: 065
  11. OMEPRAZOLE. [Concomitant]
     Active Substance: OMEPRAZOLE
     Indication: DYSPEPSIA
     Dosage: 40 MG,QD
     Route: 065
  12. LANSOPRAZOLE. [Concomitant]
     Active Substance: LANSOPRAZOLE
     Indication: PRODUCT USED FOR UNKNOWN INDICATION
     Dosage: 60 MILLIGRAM, QD
     Route: 048
  13. GABAPENTIN. [Suspect]
     Active Substance: GABAPENTIN
     Indication: PRODUCT USED FOR UNKNOWN INDICATION
     Dosage: 900 MILLIGRAM, QD
     Route: 048
  14. PREGABALIN. [Suspect]
     Active Substance: PREGABALIN
     Indication: PRODUCT USED FOR UNKNOWN INDICATION
     Dosage: UNK
     Route: 065
  15. IBUPROFEN. [Concomitant]
     Active Substance: IBUPROFEN
     Indication: ABDOMINAL PAIN
     Dosage: 400 MG,TID
     Route: 065
  16. CYCLIZINE [Suspect]
     Active Substance: CYCLIZINE
     Indication: VOMITING
     Dosage: UNK
     Route: 065
  17. SUMATRIPTAN. [Concomitant]
     Active Substance: SUMATRIPTAN
     Indication: MIGRAINE
     Dosage: 50 MG,QD
     Route: 065
  18. CYCLIZINE [Concomitant]
     Active Substance: CYCLIZINE
     Dosage: 50 MG, 3/DAY
     Route: 065
  19. DOMPERIDONE [Suspect]
     Active Substance: DOMPERIDONE
     Indication: PRODUCT USED FOR UNKNOWN INDICATION
     Dosage: 10 MG, UP TO THREE TIMES A DAY
     Route: 048
  20. AMITRIPTYLINE [Suspect]
     Active Substance: AMITRIPTYLINE
     Dosage: 100 MILLIGRAM, QD (AT NIGHT)
     Route: 048

REACTIONS (3)
  - Adrenal insufficiency [Recovered/Resolved]
  - Hyperprolactinaemia [Recovering/Resolving]
  - Pituitary tumour benign [Unknown]

NARRATIVE: CASE EVENT DATE: 200911
